FAERS Safety Report 20239203 (Version 4)
Quarter: 2022Q2

REPORT INFORMATION
  Report Type: Spontaneous
  Country: BR (occurrence: BR)
  Receive Date: 20211228
  Receipt Date: 20220628
  Transmission Date: 20220720
  Serious: Yes (Hospitalization, Other)
  Sender: FDA-Public Use
  Company Number: BR-GLAXOSMITHKLINE-BR2019GSK100933

PATIENT

DRUGS (1)
  1. NUCALA [Suspect]
     Active Substance: MEPOLIZUMAB
     Indication: Asthma
     Dosage: 100 MG, Z,  (EVERY 4 WEEKS)
     Route: 042
     Dates: start: 20190123

REACTIONS (18)
  - Increased bronchial secretion [Not Recovered/Not Resolved]
  - Throat clearing [Unknown]
  - Pneumonia [Recovered/Resolved]
  - Productive cough [Unknown]
  - Dyspnoea [Unknown]
  - Pyrexia [Unknown]
  - Pulmonary sepsis [Unknown]
  - Tachycardia [Unknown]
  - Syncope [Unknown]
  - Depressed level of consciousness [Unknown]
  - Secretion discharge [Unknown]
  - Hypoacusis [Unknown]
  - Malaise [Unknown]
  - Fall [Unknown]
  - Bedridden [Not Recovered/Not Resolved]
  - Inappropriate schedule of product administration [Not Recovered/Not Resolved]
  - Product dose omission issue [Unknown]
  - Product availability issue [Unknown]

NARRATIVE: CASE EVENT DATE: 20211201
